FAERS Safety Report 8196292-6 (Version None)
Quarter: 2012Q1

REPORT INFORMATION
  Report Type: 
  Country: None (occurrence: None)
  Receive Date: 20120307
  Receipt Date: 20120307
  Transmission Date: 20120608
  Serious: Yes (Hospitalization)
  Sender: FDA-Public Use
  Company Number: None

PATIENT
  Sex: Male
  Weight: 77.4 kg

DRUGS (3)
  1. RITUXIMAB (MOAB C2B8 ANTI CD20, CHIMERIC) [Suspect]
     Dosage: 700 MG
  2. PENTOSTATIN [Suspect]
     Dosage: 7.8 MG
  3. CYCLOPHOSPHAMIDE [Suspect]
     Dosage: 1200 MG

REACTIONS (7)
  - NEUTROPENIA [None]
  - REFUSAL OF TREATMENT BY PATIENT [None]
  - CHRONIC LYMPHOCYTIC LEUKAEMIA [None]
  - B-CELL LYMPHOMA [None]
  - LEUKAEMIA RECURRENT [None]
  - METASTASES TO PERITONEUM [None]
  - ANAEMIA HAEMOLYTIC AUTOIMMUNE [None]
